FAERS Safety Report 19972600 (Version 1)
Quarter: 2021Q4

REPORT INFORMATION
  Report Type: Spontaneous
  Country: FI (occurrence: FI)
  Receive Date: 20211019
  Receipt Date: 20211019
  Transmission Date: 20220303
  Serious: Yes (Hospitalization, Other)
  Sender: FDA-Public Use
  Company Number: FI-ABBVIE-21K-055-4120108-00

PATIENT
  Sex: Male

DRUGS (18)
  1. VALPROATE SODIUM [Suspect]
     Active Substance: VALPROATE SODIUM
     Indication: Epilepsy
     Route: 065
  2. VALPROATE SODIUM [Suspect]
     Active Substance: VALPROATE SODIUM
     Route: 065
  3. RISPERIDONE [Suspect]
     Active Substance: RISPERIDONE
     Indication: Epilepsy
     Route: 065
  4. RISPERIDONE [Suspect]
     Active Substance: RISPERIDONE
     Indication: Aggression
     Route: 065
  5. RISPERIDONE [Suspect]
     Active Substance: RISPERIDONE
     Indication: Autism spectrum disorder
     Route: 065
  6. RISPERIDONE [Suspect]
     Active Substance: RISPERIDONE
     Indication: Intellectual disability
     Route: 065
  7. QUETIAPINE FUMARATE [Suspect]
     Active Substance: QUETIAPINE FUMARATE
     Indication: Behaviour disorder
     Route: 065
  8. QUETIAPINE FUMARATE [Suspect]
     Active Substance: QUETIAPINE FUMARATE
     Route: 065
  9. LEVETIRACETAM [Suspect]
     Active Substance: LEVETIRACETAM
     Indication: Tardive dyskinesia
     Route: 065
  10. CLONAZEPAM [Suspect]
     Active Substance: CLONAZEPAM
     Indication: Epilepsy
     Route: 065
  11. DIAZEPAM [Suspect]
     Active Substance: DIAZEPAM
     Indication: Epilepsy
     Route: 065
  12. LEVOMEPROMAZINE [Suspect]
     Active Substance: LEVOMEPROMAZINE
     Indication: Aggression
     Route: 065
  13. CHLORPROTHIXENE [Suspect]
     Active Substance: CHLORPROTHIXENE
     Indication: Sleep disorder
     Route: 065
  14. HALOPERIDOL [Suspect]
     Active Substance: HALOPERIDOL
     Indication: Epilepsy
     Route: 065
  15. HALOPERIDOL [Suspect]
     Active Substance: HALOPERIDOL
     Indication: Dyskinesia
  16. PIPERIDINE [Suspect]
     Active Substance: PIPERIDINE
     Indication: Product used for unknown indication
     Route: 065
  17. MELATONIN [Suspect]
     Active Substance: MELATONIN
     Indication: Sleep disorder
     Route: 065
  18. PHENOTHIAZINE [Suspect]
     Active Substance: PHENOTHIAZINE
     Indication: Product used for unknown indication
     Route: 065

REACTIONS (12)
  - Intentional self-injury [Unknown]
  - Staphylococcal sepsis [Recovered/Resolved]
  - Intentional self-injury [Unknown]
  - Extrapyramidal disorder [Recovered/Resolved]
  - Anxiety [Recovered/Resolved]
  - Wound infection [Unknown]
  - Wound sepsis [Unknown]
  - Pain [Recovered/Resolved]
  - Insomnia [Recovered/Resolved]
  - Tic [Unknown]
  - Sedation [Recovered/Resolved]
  - Therapy non-responder [Unknown]
